FAERS Safety Report 9091262 (Version 1)
Quarter: 2013Q1

REPORT INFORMATION
  Report Type: Spontaneous
  Country: US (occurrence: US)
  Receive Date: 20130201
  Receipt Date: 20130201
  Transmission Date: 20140127
  Serious: No
  Sender: FDA-Public Use
  Company Number: US-GALDERMA-US-GDP-12413916

PATIENT
  Age: 19 Year
  Sex: Female
  Weight: 68.1 kg

DRUGS (2)
  1. EPIDUO [Suspect]
     Indication: ACNE
     Route: 061
     Dates: start: 20120511
  2. EPIDUO [Suspect]
     Route: 061
     Dates: start: 2011

REACTIONS (1)
  - Acne [Recovered/Resolved]
